FAERS Safety Report 10355133 (Version 1)
Quarter: 2014Q3

REPORT INFORMATION
  Report Type: Report from Study
  Country: JP (occurrence: JP)
  Receive Date: 20140731
  Receipt Date: 20140731
  Transmission Date: 20150326
  Serious: No
  Sender: FDA-Public Use
  Company Number: PHHY2013JP159227

PATIENT
  Age: 46 Year
  Sex: Male

DRUGS (9)
  1. SPRYCEL [Concomitant]
     Active Substance: DASATINIB
     Dosage: UNK UKN, UNK
     Dates: start: 201404, end: 201407
  2. FERROUS SULFATE [Concomitant]
     Active Substance: FERROUS SULFATE\FERROUS SULFATE, DRIED
     Dosage: UNK UKN, UNK
  3. ATORVASTATIN [Concomitant]
     Active Substance: ATORVASTATIN
     Dosage: UNK UKN, UNK
  4. TASIGNA [Suspect]
     Active Substance: NILOTINIB
     Dosage: 800 MG
     Dates: start: 201212
  5. HIBON [Concomitant]
     Active Substance: RIBOFLAVIN
     Dosage: UNK UKN, UNK
  6. ALLOPURINOL. [Concomitant]
     Active Substance: ALLOPURINOL
     Dosage: UNK UKN, UNK
  7. OMEPRAZOLE. [Concomitant]
     Active Substance: OMEPRAZOLE
     Dosage: UNK UKN, UNK
  8. URDENACIN [Concomitant]
     Dosage: UNK UKN, UNK
  9. MAGLAX [Concomitant]
     Active Substance: MAGNESIUM OXIDE
     Dosage: UNK UKN, UNK

REACTIONS (4)
  - Hair disorder [Unknown]
  - Constipation [Unknown]
  - Anaemia [Unknown]
  - Hepatic function abnormal [Unknown]
